FAERS Safety Report 4855868-1 (Version None)
Quarter: 2005Q4

REPORT INFORMATION
  Report Type: 
  Country: None (occurrence: None)
  Receive Date: 20051216
  Receipt Date: 20051208
  Transmission Date: 20060501
  Serious: Yes (Other)
  Sender: FDA-Public Use
  Company Number: 2005AP06387

PATIENT
  Age: 83 Year
  Sex: Male

DRUGS (11)
  1. PROPOFOL [Suspect]
     Indication: GENERAL ANAESTHESIA
     Route: 042
  2. ANAPEINE [Suspect]
     Indication: EPIDURAL ANAESTHESIA
     Route: 008
  3. ANAPEINE [Suspect]
     Route: 008
  4. FENTANEST [Concomitant]
     Route: 042
  5. VECURONIUM BROMIDE [Concomitant]
     Route: 042
  6. MORPHINE [Concomitant]
     Indication: EPIDURAL ANAESTHESIA
     Route: 008
  7. NITROUS OXIDE W/ OXYGEN [Concomitant]
     Indication: MAINTENANCE OF ANAESTHESIA
     Route: 055
  8. OXYGEN [Concomitant]
     Indication: MAINTENANCE OF ANAESTHESIA
     Route: 055
  9. SEVOFLURANE [Concomitant]
     Indication: MAINTENANCE OF ANAESTHESIA
     Route: 055
  10. INFUSION SOLUTION [Concomitant]
     Indication: BLOOD PRESSURE FLUCTUATION
     Route: 041
  11. DOPAMINE [Concomitant]
     Indication: BLOOD PRESSURE FLUCTUATION
     Route: 041

REACTIONS (1)
  - SPINAL CORD INFARCTION [None]
